FAERS Safety Report 14009217 (Version 5)
Quarter: 2018Q1

REPORT INFORMATION
  Report Type: Report from Study
  Country: US (occurrence: US)
  Receive Date: 20170925
  Receipt Date: 20180126
  Transmission Date: 20180508
  Serious: Yes (Death, Hospitalization, Other)
  Sender: FDA-Public Use
  Company Number: US-ACTELION-A-NJ2017-150589

PATIENT
  Age: 53 Year
  Sex: Female
  Weight: 48.98 kg

DRUGS (9)
  1. REMODULIN [Concomitant]
     Active Substance: TREPROSTINIL
     Dosage: 51 NG/KG, PER MIN
  2. IMODIUM [Suspect]
     Active Substance: LOPERAMIDE HYDROCHLORIDE
     Indication: PRODUCT USED FOR UNKNOWN INDICATION
     Route: 048
  3. REMODULIN [Concomitant]
     Active Substance: TREPROSTINIL
     Dosage: 63 NG/KG, PER MIN
  4. OPSUMIT [Suspect]
     Active Substance: MACITENTAN
     Indication: PULMONARY ARTERIAL HYPERTENSION
     Dosage: 10 MG, QD
     Route: 048
  5. REVATIO [Concomitant]
     Active Substance: SILDENAFIL CITRATE
  6. LOMOTIL [Concomitant]
     Active Substance: ATROPINE SULFATE\DIPHENOXYLATE HYDROCHLORIDE
  7. OPSUMIT [Suspect]
     Active Substance: MACITENTAN
     Dosage: 10 MG, QD
     Route: 048
  8. REMODULIN [Concomitant]
     Active Substance: TREPROSTINIL
     Dosage: 56 NG/KG, PER MIN
     Route: 065
  9. REMODULIN [Concomitant]
     Active Substance: TREPROSTINIL
     Dosage: 50 NG/KG, PER MIN
     Route: 065

REACTIONS (27)
  - Unevaluable event [Unknown]
  - Asthenia [Unknown]
  - Hypotension [Unknown]
  - Blood potassium decreased [Unknown]
  - Decreased appetite [Unknown]
  - Platelet count decreased [Unknown]
  - Disease progression [Unknown]
  - Upper-airway cough syndrome [Unknown]
  - Cataract [Unknown]
  - Depressed level of consciousness [Unknown]
  - Terminal state [Unknown]
  - Visual impairment [Unknown]
  - Dysphagia [Unknown]
  - Loss of consciousness [Unknown]
  - Syncope [Unknown]
  - Intraocular pressure fluctuation [Unknown]
  - Pneumonia [Unknown]
  - Oral discomfort [Unknown]
  - Myocardial infarction [Fatal]
  - Diarrhoea [Unknown]
  - Weight decreased [Unknown]
  - Epistaxis [Unknown]
  - Choking [Unknown]
  - Dyspepsia [Unknown]
  - Pulmonary arterial hypertension [Unknown]
  - Pulmonary hypertension [Unknown]
  - Hypersensitivity [Unknown]

NARRATIVE: CASE EVENT DATE: 20171218
